FAERS Safety Report 8313528-9 (Version None)
Quarter: 2012Q2

REPORT INFORMATION
  Report Type: 
  Country: None (occurrence: None)
  Receive Date: 20120426
  Receipt Date: 20120417
  Transmission Date: 20120825
  Serious: Yes (Death, Life-Threatening, Hospitalization)
  Sender: FDA-Public Use
  Company Number: DE-NOVOPROD-331651

PATIENT
  Age: 90 Year
  Sex: Female
  Weight: 74 kg

DRUGS (5)
  1. ACTRAPHANE 30 PENFILL [Suspect]
     Indication: TYPE 2 DIABETES MELLITUS
     Route: 058
     Dates: start: 20101014
  2. NOVODIGAL MITE [Concomitant]
     Indication: PRODUCT USED FOR UNKNOWN INDICATION
     Dosage: UNK, QD
     Route: 048
     Dates: start: 19990101
  3. PENTAERYTHRITOL TETRANITRATE [Concomitant]
     Indication: PRODUCT USED FOR UNKNOWN INDICATION
     Dosage: UNK, BID
     Route: 048
     Dates: start: 19980101
  4. HERZ ASS 100 [Concomitant]
     Indication: PRODUCT USED FOR UNKNOWN INDICATION
     Dosage: UNK, QD
  5. LOSARTAN COMP. 100/25 [Concomitant]
     Indication: PRODUCT USED FOR UNKNOWN INDICATION
     Dosage: UNK
     Route: 048
     Dates: start: 19990101

REACTIONS (2)
  - B-CELL LYMPHOMA [None]
  - BONE SARCOMA [None]
